FAERS Safety Report 6385911-2 (Version None)
Quarter: 2009Q4

REPORT INFORMATION
  Report Type: 
  Country: None (occurrence: None)
  Receive Date: 20091002
  Receipt Date: 20090130
  Transmission Date: 20100525
  Serious: No
  Sender: FDA-Public Use
  Company Number: US-ASTRAZENECA-2009UW02823

PATIENT
  Age: 70 Year
  Sex: Female
  Weight: 70.3 kg

DRUGS (14)
  1. ARIMIDEX [Suspect]
     Indication: BREAST CANCER
     Route: 048
     Dates: start: 20070101
  2. VITAMIN B COMPLEX CAP [Concomitant]
  3. ABELIDE [Concomitant]
     Indication: ILL-DEFINED DISORDER
  4. ASPIRIN [Concomitant]
  5. ATENOLOL [Concomitant]
     Indication: HYPERTENSION
  6. BYETTA [Concomitant]
     Indication: DIABETES MELLITUS
  7. CALCIUM + D [Concomitant]
  8. CENTRUM [Concomitant]
  9. HUMILOG PEN [Concomitant]
  10. IRON [Concomitant]
     Indication: BLOOD IRON
  11. LANTASE [Concomitant]
     Indication: DIABETES MELLITUS
  12. LIPITOR [Concomitant]
     Indication: BLOOD CHOLESTEROL INCREASED
  13. METFORMIN [Concomitant]
     Indication: DIABETES MELLITUS
  14. NORVASC [Concomitant]
     Indication: HYPERTENSION

REACTIONS (5)
  - ABDOMINAL PAIN UPPER [None]
  - MUSCULOSKELETAL CHEST PAIN [None]
  - MUSCULOSKELETAL PAIN [None]
  - PAIN [None]
  - PAIN IN EXTREMITY [None]
